FAERS Safety Report 5086837-7 (Version None)
Quarter: 2006Q3

REPORT INFORMATION
  Report Type: 
  Country: None (occurrence: None)
  Receive Date: 20060818
  Receipt Date: 20060807
  Transmission Date: 20061208
  Serious: Yes (Life-Threatening, Hospitalization)
  Sender: FDA-Public Use
  Company Number: 1-14131828/MED-06135

PATIENT
  Age: 58 Year
  Sex: Female

DRUGS (7)
  1. AMITRIPTYLINE TABLET 25MG [Suspect]
     Indication: INSOMNIA
     Dosage: 25MG ONCE DAILY AT BEDTIME, ORAL  SEVERAL YEARS
     Route: 048
  2. AMITRIPTYLINE TABLET 25MG [Suspect]
     Indication: PAIN
     Dosage: 25MG ONCE DAILY AT BEDTIME, ORAL  SEVERAL YEARS
     Route: 048
  3. DIAZEPAM [Concomitant]
  4. LISINOPRIL [Concomitant]
  5. FOSAMAX [Concomitant]
  6. OMEPRAZOLE [Concomitant]
  7. HYDROCODONE BITARTRATE + ACETAMINOPHEN [Concomitant]

REACTIONS (6)
  - CARDIAC ARREST [None]
  - COELIAC DISEASE [None]
  - DIARRHOEA [None]
  - LOSS OF CONSCIOUSNESS [None]
  - MALNUTRITION [None]
  - WEIGHT DECREASED [None]
